FAERS Safety Report 7460505-6 (Version None)
Quarter: 2011Q2

REPORT INFORMATION
  Report Type: 
  Country: None (occurrence: None)
  Receive Date: 20110505
  Receipt Date: 20110425
  Transmission Date: 20111010
  Serious: Yes (Hospitalization, Other)
  Sender: FDA-Public Use
  Company Number: JP-MERCK-1103USA03643

PATIENT
  Age: 51 Year
  Sex: Female

DRUGS (13)
  1. MAINHEART [Concomitant]
     Route: 065
     Dates: start: 20070928, end: 20110315
  2. JANUVIA [Suspect]
     Indication: TYPE 2 DIABETES MELLITUS
     Route: 048
     Dates: start: 20110208, end: 20110315
  3. NORVASC [Concomitant]
     Route: 065
     Dates: start: 20070928
  4. AMARYL [Concomitant]
     Route: 065
     Dates: start: 20090428, end: 20110315
  5. MERISLON [Concomitant]
     Route: 065
     Dates: start: 20110208
  6. SODIUM BICARBONATE [Concomitant]
     Route: 065
  7. LASIX [Concomitant]
     Route: 065
     Dates: start: 20080902, end: 20110315
  8. ALDACTONE [Concomitant]
     Route: 065
     Dates: start: 20100824, end: 20110315
  9. OLMETEC [Concomitant]
     Route: 065
     Dates: start: 20070928, end: 20110315
  10. MELBIN [Concomitant]
     Route: 065
     Dates: start: 20081028, end: 20110315
  11. ADETPHOS [Concomitant]
     Route: 065
     Dates: start: 20110208
  12. TANATRIL [Concomitant]
     Route: 065
     Dates: start: 20070928, end: 20110315
  13. FLUTICASONE PROPIONATE [Concomitant]
     Route: 065
     Dates: start: 20080902

REACTIONS (1)
  - RENAL FAILURE ACUTE [None]
